FAERS Safety Report 26017421 (Version 1)
Quarter: 2025Q4

REPORT INFORMATION
  Report Type: Spontaneous
  Country: CN (occurrence: CN)
  Receive Date: 20251110
  Receipt Date: 20251110
  Transmission Date: 20260118
  Serious: Yes (Other)
  Sender: ACCORD
  Company Number: CN-Accord-511791

PATIENT
  Age: 51 Year
  Sex: Male

DRUGS (8)
  1. OXALIPLATIN [Suspect]
     Active Substance: OXALIPLATIN
     Indication: Adenocarcinoma gastric stage IV
     Dosage: 100 MG/M2, IVGTT, DAY 1
     Route: 042
     Dates: start: 20220216, end: 202204
  2. PACLITAXEL [Suspect]
     Active Substance: PACLITAXEL
     Indication: Adenocarcinoma gastric stage IV
     Dosage: 160 MG/M2, IVGTT, DAY 1
     Route: 042
     Dates: start: 20220216
  3. TS-1 [Suspect]
     Active Substance: GIMERACIL\OTERACIL POTASSIUM\TEGAFUR
     Indication: Adenocarcinoma gastric stage IV
     Dosage: 40 MG/M2, PO, BID, D1-14
     Route: 048
     Dates: start: 20220216
  4. SINTILIMAB [Suspect]
     Active Substance: SINTILIMAB
     Indication: Adenocarcinoma gastric stage IV
     Dosage: CYCLE 1: IVGTT, DAY 1
     Route: 042
     Dates: start: 20220216
  5. SINTILIMAB [Suspect]
     Active Substance: SINTILIMAB
     Indication: Metastases to liver
     Dosage: CYCLE 1: IVGTT, DAY 1
     Route: 042
     Dates: start: 20220216
  6. TS-1 [Suspect]
     Active Substance: GIMERACIL\OTERACIL POTASSIUM\TEGAFUR
     Indication: Metastases to liver
     Dosage: 40 MG/M2, PO, BID, D1-14
     Route: 048
     Dates: start: 20220216
  7. PACLITAXEL [Suspect]
     Active Substance: PACLITAXEL
     Indication: Metastases to liver
     Dosage: 160 MG/M2, IVGTT, DAY 1
     Route: 042
     Dates: start: 20220216
  8. OXALIPLATIN [Suspect]
     Active Substance: OXALIPLATIN
     Indication: Metastases to liver
     Dosage: 100 MG/M2, IVGTT, DAY 1
     Route: 042
     Dates: start: 20220216, end: 202204

REACTIONS (1)
  - Haematotoxicity [Recovered/Resolved]

NARRATIVE: CASE EVENT DATE: 20220401
